FAERS Safety Report 7111726-3 (Version None)
Quarter: 2010Q4

REPORT INFORMATION
  Report Type: 
  Country: None (occurrence: None)
  Receive Date: 20101118
  Receipt Date: 20101110
  Transmission Date: 20110411
  Serious: Yes (Other)
  Sender: FDA-Public Use
  Company Number: US-MERCK-0603USA01221

PATIENT
  Age: 77 Year
  Sex: Male

DRUGS (6)
  1. PROSCAR [Suspect]
     Indication: DYSURIA
     Route: 048
     Dates: start: 20060126
  2. PROSCAR [Suspect]
     Indication: BENIGN PROSTATIC HYPERPLASIA
     Route: 048
     Dates: start: 20060126
  3. AGGRENOX [Suspect]
     Route: 065
  4. PILOCARPINE [Concomitant]
     Route: 065
  5. RHINOCORT [Concomitant]
     Route: 065
  6. COZAAR [Concomitant]
     Route: 048

REACTIONS (5)
  - BLOOD IRON DECREASED [None]
  - EPISTAXIS [None]
  - OFF LABEL USE [None]
  - THROMBOCYTOPENIA [None]
  - THROMBOCYTOPENIC PURPURA [None]
